FAERS Safety Report 11626670 (Version 2)
Quarter: 2015Q4

REPORT INFORMATION
  Report Type: Report from Study
  Country: US (occurrence: US)
  Receive Date: 20151013
  Receipt Date: 20151111
  Transmission Date: 20160304
  Serious: Yes (Hospitalization, Other)
  Sender: FDA-Public Use
  Company Number: US-GILEAD-2015-0176411

PATIENT
  Age: 44 Year
  Sex: Female

DRUGS (32)
  1. AMBRISENTAN [Suspect]
     Active Substance: AMBRISENTAN
     Indication: DIAPHRAGMATIC PARALYSIS
  2. ALPHAGAN P [Concomitant]
     Active Substance: BRIMONIDINE TARTRATE
  3. ALBUTEROL                          /00139501/ [Concomitant]
     Active Substance: ALBUTEROL
  4. AMBRISENTAN [Suspect]
     Active Substance: AMBRISENTAN
     Indication: OBESITY
  5. TORSEMIDE. [Concomitant]
     Active Substance: TORSEMIDE
  6. TRIAMTERENE. [Concomitant]
     Active Substance: TRIAMTERENE
  7. LACTOSE [Concomitant]
     Active Substance: LACTOSE
  8. ALTACE [Concomitant]
     Active Substance: RAMIPRIL
  9. LASIX [Concomitant]
     Active Substance: FUROSEMIDE
  10. FELODIPINE EG [Concomitant]
  11. ADCIRCA [Concomitant]
     Active Substance: TADALAFIL
  12. CARDIZEM [Concomitant]
     Active Substance: DILTIAZEM HYDROCHLORIDE
  13. OMEPRAZOLE. [Concomitant]
     Active Substance: OMEPRAZOLE
  14. AMBRISENTAN [Suspect]
     Active Substance: AMBRISENTAN
     Indication: SLEEP APNOEA SYNDROME
  15. TYVASO [Concomitant]
     Active Substance: TREPROSTINIL
  16. NALOXEGOL [Concomitant]
     Active Substance: NALOXEGOL
  17. METOPROLOL SUCCINATE. [Concomitant]
     Active Substance: METOPROLOL SUCCINATE
  18. OXYCODONE [Concomitant]
     Active Substance: OXYCODONE
  19. ATIVAN [Concomitant]
     Active Substance: LORAZEPAM
  20. LEVOXYL [Concomitant]
     Active Substance: LEVOTHYROXINE SODIUM
  21. AMBRISENTAN [Suspect]
     Active Substance: AMBRISENTAN
     Indication: PULMONARY HYPERTENSION
     Dosage: 5 MG, QD
     Route: 065
     Dates: start: 20150211
  22. AMBRISENTAN [Suspect]
     Active Substance: AMBRISENTAN
     Indication: SARCOIDOSIS
  23. POTASSIUM CHLORIDE. [Concomitant]
     Active Substance: POTASSIUM CHLORIDE
  24. VITAMIN D                          /00107901/ [Concomitant]
     Active Substance: ERGOCALCIFEROL
  25. AMBRISENTAN [Suspect]
     Active Substance: AMBRISENTAN
     Indication: PICKWICKIAN SYNDROME
  26. AUBAGIO [Concomitant]
     Active Substance: TERIFLUNOMIDE
  27. ASPIRIN                            /00002701/ [Concomitant]
     Active Substance: ASPIRIN
  28. DIGOXIN. [Concomitant]
     Active Substance: DIGOXIN
  29. REBIF [Concomitant]
     Active Substance: INTERFERON BETA-1A
  30. ACETAMINOPHEN. [Concomitant]
     Active Substance: ACETAMINOPHEN
  31. CYMBALTA [Concomitant]
     Active Substance: DULOXETINE HYDROCHLORIDE
  32. VITAMIN B12 [Concomitant]
     Active Substance: CYANOCOBALAMIN

REACTIONS (1)
  - Atrial fibrillation [Unknown]
